FAERS Safety Report 21079115 (Version 2)
Quarter: 2022Q3

REPORT INFORMATION
  Report Type: Report from Study
  Country: US (occurrence: US)
  Receive Date: 20220714
  Receipt Date: 20220912
  Transmission Date: 20221027
  Serious: Yes (Death, Hospitalization, Other)
  Sender: FDA-Public Use
  Company Number: US-TAKEDA-2022TUS046403

PATIENT
  Sex: Male

DRUGS (8)
  1. TEDUGLUTIDE [Suspect]
     Active Substance: TEDUGLUTIDE
     Indication: Short-bowel syndrome
     Dosage: 2.5 MILLIGRAM, QD
     Route: 058
     Dates: start: 202203
  2. TEDUGLUTIDE [Suspect]
     Active Substance: TEDUGLUTIDE
     Indication: Short-bowel syndrome
     Dosage: 2.5 MILLIGRAM, QD
     Route: 058
     Dates: start: 202203
  3. TEDUGLUTIDE [Suspect]
     Active Substance: TEDUGLUTIDE
     Indication: Short-bowel syndrome
     Dosage: 2.5 MILLIGRAM, QD
     Route: 058
     Dates: start: 202203
  4. TEDUGLUTIDE [Suspect]
     Active Substance: TEDUGLUTIDE
     Indication: Short-bowel syndrome
     Dosage: 2.5 MILLIGRAM, QD
     Route: 058
     Dates: start: 202203
  5. TEDUGLUTIDE [Suspect]
     Active Substance: TEDUGLUTIDE
     Indication: Malnutrition
     Dosage: 2.5 MILLIGRAM, QD
     Route: 058
     Dates: start: 20220310
  6. TEDUGLUTIDE [Suspect]
     Active Substance: TEDUGLUTIDE
     Indication: Malnutrition
     Dosage: 2.5 MILLIGRAM, QD
     Route: 058
     Dates: start: 20220310
  7. TEDUGLUTIDE [Suspect]
     Active Substance: TEDUGLUTIDE
     Indication: Malnutrition
     Dosage: 2.5 MILLIGRAM, QD
     Route: 058
     Dates: start: 20220310
  8. TEDUGLUTIDE [Suspect]
     Active Substance: TEDUGLUTIDE
     Indication: Malnutrition
     Dosage: 2.5 MILLIGRAM, QD
     Route: 058
     Dates: start: 20220310

REACTIONS (4)
  - Death [Fatal]
  - Dehydration [Unknown]
  - Malnutrition [Unknown]
  - Weight decreased [Unknown]
